FAERS Safety Report 10248660 (Version 1)
Quarter: 2014Q2

REPORT INFORMATION
  Report Type: Spontaneous
  Country: FR (occurrence: None)
  Receive Date: 20140618
  Receipt Date: 20140618
  Transmission Date: 20141212
  Serious: Yes (Death, Hospitalization)
  Sender: FDA-Public Use
  Company Number: AUR-APL-2014-06372

PATIENT
  Age: 37 Year
  Sex: Female

DRUGS (14)
  1. RAMIPRIL [Suspect]
     Indication: PRODUCT USED FOR UNKNOWN INDICATION
     Route: 048
  2. METFORMIN [Suspect]
     Indication: TYPE 2 DIABETES MELLITUS
     Route: 048
  3. BROMAZEPAM (BROMAZEPAM) [Suspect]
     Indication: PRODUCT USED FOR UNKNOWN INDICATION
     Route: 048
  4. ZOPICLONE [Suspect]
     Indication: PRODUCT USED FOR UNKNOWN INDICATION
     Route: 048
  5. ISOPTINE [Suspect]
     Indication: PRODUCT USED FOR UNKNOWN INDICATION
     Route: 048
  6. LANTUS (INSULIN GLARGINE) [Concomitant]
  7. INEXIUM (ESOMEPRAZOLE MAGNESIUM) [Concomitant]
  8. NOVORAPID (INSULIN ASPART) [Concomitant]
  9. DIFFU K (POTASSIUM CHLORIDE) [Concomitant]
  10. ALDACTONE (SPIRONOLACTONE) [Concomitant]
  11. LYRICA (PREGABALIN) [Concomitant]
  12. IBUPROFENE (IBUPROFEN) [Concomitant]
  13. VOLTARENE (DICLOFENAC SODIUM) [Concomitant]
  14. NIZORAL (KETOCONAZOLE) [Concomitant]

REACTIONS (11)
  - Cardio-respiratory arrest [None]
  - Multi-organ failure [None]
  - Renal failure [None]
  - Rhabdomyolysis [None]
  - Metabolic acidosis [None]
  - Hypotension [None]
  - Bradycardia [None]
  - Dyspnoea [None]
  - Diarrhoea [None]
  - Pyrexia [None]
  - Dialysis [None]
